FAERS Safety Report 17844753 (Version 1)
Quarter: 2020Q2

REPORT INFORMATION
  Report Type: Spontaneous
  Country: US (occurrence: US)
  Receive Date: 20200601
  Receipt Date: 20200601
  Transmission Date: 20200714
  Serious: No
  Sender: FDA-Public Use
  Company Number: US-SUN PHARMACEUTICAL INDUSTRIES LTD-2019R1-224388

PATIENT
  Sex: Female

DRUGS (1)
  1. BROMFENAC [Suspect]
     Active Substance: BROMFENAC SODIUM
     Indication: POSTOPERATIVE CARE
     Dosage: 1 DROP FOR 3 WEEKS
     Route: 047
     Dates: start: 201909

REACTIONS (4)
  - Vision blurred [Recovering/Resolving]
  - Eye pain [Recovering/Resolving]
  - Excessive eye blinking [Recovering/Resolving]
  - Dry eye [Recovering/Resolving]

NARRATIVE: CASE EVENT DATE: 201909
